FAERS Safety Report 6467092-X (Version None)
Quarter: 2009Q4

REPORT INFORMATION
  Report Type: 
  Country: None (occurrence: None)
  Receive Date: 20091202
  Receipt Date: 20091123
  Transmission Date: 20100525
  Serious: Yes (Other)
  Sender: FDA-Public Use
  Company Number: US-PFIZER INC-2009301599

PATIENT
  Sex: Female
  Weight: 81.633 kg

DRUGS (8)
  1. LIPITOR [Suspect]
     Indication: CEREBROVASCULAR ACCIDENT
     Dosage: 80 MG, 1X/DAY
     Route: 048
     Dates: end: 20091101
  2. PROZAC [Concomitant]
     Dosage: UNK
  3. PROCARDIA [Concomitant]
     Dosage: UNK
  4. AGGRENOX [Concomitant]
     Dosage: UNK
  5. CALCIUM [Concomitant]
     Dosage: 500 MG, 3X/DAY
  6. VITAMIN D [Concomitant]
     Dosage: UNK
  7. ASCORBIC ACID [Concomitant]
     Dosage: UNK
  8. MULTI-VITAMINS [Concomitant]
     Dosage: UNK

REACTIONS (2)
  - H1N1 INFLUENZA [None]
  - PNEUMONIA [None]
